FAERS Safety Report 23759258 (Version 1)
Quarter: 2024Q2

REPORT INFORMATION
  Report Type: Spontaneous
  Country: US (occurrence: None)
  Receive Date: 20240418
  Receipt Date: 20240418
  Transmission Date: 20240716
  Serious: No
  Sender: FDA-Public Use
  Company Number: US-ROCHE-3369652

PATIENT
  Sex: Female
  Weight: 99.88 kg

DRUGS (3)
  1. ESBRIET [Suspect]
     Active Substance: PIRFENIDONE
     Indication: Pulmonary fibrosis
     Route: 048
     Dates: start: 2022
  2. ESBRIET [Suspect]
     Active Substance: PIRFENIDONE
     Indication: Chronic obstructive pulmonary disease
  3. ALBUTEROL [Concomitant]
     Active Substance: ALBUTEROL
     Indication: Chronic obstructive pulmonary disease
     Dosage: TAKES A COUPLE TIMES OF DAY IF NEEDED ;ONGOING: YES
     Route: 055

REACTIONS (3)
  - Choking [Recovered/Resolved]
  - Cough [Recovered/Resolved]
  - Aphonia [Recovering/Resolving]

NARRATIVE: CASE EVENT DATE: 20230601
